FAERS Safety Report 4333850-0 (Version None)
Quarter: 2004Q2

REPORT INFORMATION
  Report Type: 
  Country: None (occurrence: None)
  Receive Date: 20040402
  Receipt Date: 20040329
  Transmission Date: 20050107
  Serious: Yes (Hospitalization)
  Sender: FDA-Public Use
  Company Number: 2003-11-1164

PATIENT
  Age: 57 Year
  Sex: Male
  Weight: 88.4514 kg

DRUGS (5)
  1. REBETOL [Suspect]
     Indication: HEPATITIS C
     Dosage: 1200 MG QD ORAL
     Route: 048
     Dates: start: 20030513, end: 20030617
  2. INTRON A [Suspect]
     Indication: HEPATITIS C
     Dosage: ^3.0^ TIW, SUBCUTANEOUS, ^1.5^ TIW, SUBCUTANEOUS
     Route: 058
     Dates: start: 20030513, end: 20030608
  3. INTRON A [Suspect]
     Indication: HEPATITIS C
     Dosage: ^3.0^ TIW, SUBCUTANEOUS, ^1.5^ TIW, SUBCUTANEOUS
     Route: 058
     Dates: start: 20030610, end: 20030617
  4. RABEPRAZOLE SODIUM [Concomitant]
  5. SPIRONOLACTONE [Concomitant]

REACTIONS (17)
  - ABASIA [None]
  - ALANINE AMINOTRANSFERASE INCREASED [None]
  - ASPARTATE AMINOTRANSFERASE INCREASED [None]
  - BACK PAIN [None]
  - BLOOD BILIRUBIN INCREASED [None]
  - DERMATITIS EXFOLIATIVE [None]
  - DROOLING [None]
  - DRUG INEFFECTIVE [None]
  - EATING DISORDER [None]
  - HAIR GROWTH ABNORMAL [None]
  - IMPAIRED DRIVING ABILITY [None]
  - INFECTION [None]
  - MEDICATION ERROR [None]
  - MEMORY IMPAIRMENT [None]
  - OEDEMA PERIPHERAL [None]
  - PHARMACEUTICAL PRODUCT COMPLAINT [None]
  - RASH [None]
